FAERS Safety Report 7713370-3 (Version None)
Quarter: 2011Q3

REPORT INFORMATION
  Report Type: 
  Country: None (occurrence: None)
  Receive Date: 20110826
  Receipt Date: 20110818
  Transmission Date: 20111222
  Serious: Yes (Hospitalization, Other)
  Sender: FDA-Public Use
  Company Number: US-BAYER-201041651NA

PATIENT
  Age: 54 Year
  Sex: Female

DRUGS (8)
  1. CALCIUM GLUCONATE [Concomitant]
  2. TRASYLOL [Suspect]
     Indication: AORTIC VALVE REPLACEMENT
  3. LASIX [Concomitant]
  4. SODIUM BICARBONATE [Concomitant]
  5. INSULIN [Concomitant]
  6. TRASYLOL [Suspect]
     Indication: AORTIC SURGERY
     Dosage: UNK
     Route: 042
     Dates: start: 20030119
  7. TRASYLOL [Suspect]
     Indication: TRICUSPID VALVE REPAIR
  8. KAYEXALATE [Concomitant]

REACTIONS (10)
  - RENAL INJURY [None]
  - RENAL IMPAIRMENT [None]
  - PAIN [None]
  - FEAR [None]
  - ANXIETY [None]
  - RENAL FAILURE [None]
  - UNEVALUABLE EVENT [None]
  - INJURY [None]
  - EMOTIONAL DISTRESS [None]
  - STRESS [None]
